FAERS Safety Report 13523002 (Version 3)
Quarter: 2017Q2

REPORT INFORMATION
  Report Type: Report from Study
  Country: None (occurrence: FI)
  Receive Date: 20170508
  Receipt Date: 20170601
  Transmission Date: 20170830
  Serious: Yes (Hospitalization, Other)
  Sender: FDA-Public Use
  Company Number: FI-ABBVIE-17P-055-1966631-00

PATIENT
  Age: 72 Year
  Sex: Male

DRUGS (1)
  1. DUODOPA [Suspect]
     Active Substance: CARBIDOPA\LEVODOPA
     Indication: PARKINSON^S DISEASE
     Route: 050
     Dates: start: 201510

REACTIONS (6)
  - Hypoaesthesia [Recovering/Resolving]
  - Nerve compression [Recovering/Resolving]
  - Gait disturbance [Recovering/Resolving]
  - Spinal column stenosis [Recovering/Resolving]
  - Postoperative wound infection [Recovering/Resolving]
  - Constipation [Recovering/Resolving]

NARRATIVE: CASE EVENT DATE: 201606
